FAERS Safety Report 14721161 (Version 1)
Quarter: 2018Q2

REPORT INFORMATION
  Report Type: Spontaneous
  Country: US (occurrence: US)
  Receive Date: 20180405
  Receipt Date: 20180405
  Transmission Date: 20180711
  Serious: Yes (Other)
  Sender: FDA-Public Use
  Company Number: US-CIPLA LTD.-2018US14333

PATIENT

DRUGS (4)
  1. MONTELUKAST [Suspect]
     Active Substance: MONTELUKAST SODIUM
     Indication: EOSINOPHILIA
     Dosage: UNK
     Route: 065
  2. ECULIZUMAB [Concomitant]
     Active Substance: ECULIZUMAB
     Indication: EOSINOPHILIA
     Dosage: UNK, 21 DAY REGIMEN
     Route: 065
  3. HUMAN IMMUNOGLBULIN [Concomitant]
     Active Substance: HUMAN IMMUNOGLOBULIN G
     Indication: EOSINOPHILIA
     Dosage: UNK
     Route: 065
  4. PREDNISONE. [Concomitant]
     Active Substance: PREDNISONE
     Indication: EOSINOPHILIA
     Dosage: UNK
     Route: 065

REACTIONS (1)
  - Condition aggravated [Unknown]
